FAERS Safety Report 5867892-0 (Version None)
Quarter: 2008Q3

REPORT INFORMATION
  Report Type: 
  Country: None (occurrence: None)
  Receive Date: 20080902
  Receipt Date: 20080715
  Transmission Date: 20090109
  Serious: No
  Sender: FDA-Public Use
  Company Number: US-ABBOTT-08P-163-0463526-00

PATIENT
  Sex: Female
  Weight: 59.02 kg

DRUGS (5)
  1. DEPAKOTE ER [Suspect]
     Indication: BIPOLAR DISORDER
     Dates: start: 20080708
  2. LEVOTHYROXINE SODIUM [Concomitant]
     Indication: HYPOTHYROIDISM
     Route: 048
     Dates: start: 20080301
  3. ESCITALOPRAM OXALATE [Concomitant]
     Indication: DEPRESSION
     Route: 048
  4. TRAZODONE HCL [Concomitant]
     Indication: DEPRESSION
     Dosage: 50 - 100 MG (1 - 2 TABLETS)  AT BEDTIME
     Route: 048
  5. YELLOW PHENOLPHTHALEIN [Concomitant]
     Indication: CONSTIPATION
     Dosage: 2 - 4 PILLS DAILY AS NEEDED
     Route: 048

REACTIONS (8)
  - BOWEL MOVEMENT IRREGULARITY [None]
  - CONSTIPATION [None]
  - COORDINATION ABNORMAL [None]
  - DIZZINESS [None]
  - DYSARTHRIA [None]
  - SENSORY DISTURBANCE [None]
  - SOMNOLENCE [None]
  - UNEVALUABLE EVENT [None]
